FAERS Safety Report 19819245 (Version 1)
Quarter: 2021Q3

REPORT INFORMATION
  Report Type: Spontaneous
  Country: IT (occurrence: IT)
  Receive Date: 20210913
  Receipt Date: 20210913
  Transmission Date: 20211014
  Serious: No
  Sender: FDA-Public Use
  Company Number: IT-LUPIN PHARMACEUTICALS INC.-2021-16857

PATIENT
  Age: 2 Year
  Sex: Male

DRUGS (6)
  1. HYDROXYCHLOROQUINE [Suspect]
     Active Substance: HYDROXYCHLOROQUINE
     Indication: COVID-19
     Dosage: 2.5 MILLIGRAM/KILOGRAM
     Route: 065
     Dates: start: 202003
  2. BUSULFAN. [Concomitant]
     Active Substance: BUSULFAN
     Dosage: (AUC 80,988 NG/ML/H)
     Route: 065
  3. FLUDARABINE [Concomitant]
     Active Substance: FLUDARABINE PHOSPHATE
     Indication: WISKOTT-ALDRICH SYNDROME
     Dosage: UNK (TOTAL DOSE OF 60 MILLIGRAM PER SQUARE METER)
     Route: 065
  4. RITUXIMAB. [Concomitant]
     Active Substance: RITUXIMAB
     Indication: WISKOTT-ALDRICH SYNDROME
     Dosage: 325 MILLIGRAM/SQ. METER
     Route: 065
  5. BUSULFAN. [Concomitant]
     Active Substance: BUSULFAN
     Indication: WISKOTT-ALDRICH SYNDROME
     Dosage: UNK ([WEIGHT AND AREA UNDER THE CURVE (AUC) ? TARGETED, TARGET AUC 48,000 PLUS MINUS 10% NG/ML/H])
     Route: 065
  6. LOPINAVIR/RITONAVIR [Suspect]
     Active Substance: LOPINAVIR\RITONAVIR
     Indication: COVID-19
     Dosage: 12 MILLIGRAM/KILOGRAM
     Route: 065
     Dates: start: 202003

REACTIONS (1)
  - Off label use [Unknown]

NARRATIVE: CASE EVENT DATE: 202003
